FAERS Safety Report 19367400 (Version 1)
Quarter: 2021Q2

REPORT INFORMATION
  Report Type: Spontaneous
  Country: US (occurrence: US)
  Receive Date: 20210602
  Receipt Date: 20210602
  Transmission Date: 20210717
  Serious: No
  Sender: FDA-Public Use
  Company Number: US-ROCHE-2807356

PATIENT
  Age: 24 Year
  Sex: Female
  Weight: 34.05 kg

DRUGS (2)
  1. ERRIN (UNITED STATES) [Concomitant]
     Indication: CONTRACEPTION
     Route: 048
     Dates: start: 20200801
  2. EVRYSDI [Suspect]
     Active Substance: RISDIPLAM
     Indication: SPINAL MUSCULAR ATROPHY
     Route: 048
     Dates: start: 20201218

REACTIONS (2)
  - Polymenorrhoea [Not Recovered/Not Resolved]
  - Pyrexia [Not Recovered/Not Resolved]

NARRATIVE: CASE EVENT DATE: 20201218
